FAERS Safety Report 24173551 (Version 1)
Quarter: 2024Q3

REPORT INFORMATION
  Report Type: Other
  Country: CN (occurrence: CN)
  Receive Date: 20240805
  Receipt Date: 20240805
  Transmission Date: 20241016
  Serious: Yes (Hospitalization)
  Sender: QILU PHARMACEUTICAL
  Company Number: CN-QILU PHARMACEUTICAL CO.LTD.-QLU-000128-2024

PATIENT
  Age: 89 Year
  Sex: Male

DRUGS (4)
  1. ABIRATERONE ACETATE [Suspect]
     Active Substance: ABIRATERONE ACETATE
     Indication: Chemotherapy
     Dosage: 0.75G PER DAY (QD)
     Route: 048
     Dates: start: 20240608, end: 20240616
  2. ABIRATERONE ACETATE [Suspect]
     Active Substance: ABIRATERONE ACETATE
     Dosage: 1 G PER DAY (QD)
     Route: 048
     Dates: start: 20240617, end: 20240716
  3. DENOSUMAB [Suspect]
     Active Substance: DENOSUMAB
     Indication: Chemotherapy
     Dosage: 120 MG PER DAY (QD)
     Route: 058
     Dates: start: 20240617, end: 20240617
  4. LEUPROLIDE ACETATE [Suspect]
     Active Substance: ISOPROPYL ALCOHOL\LEUPROLIDE ACETATE
     Indication: Chemotherapy
     Dosage: 3.750MG PER DAY (QD) (MICROSPHERES FOR INJECTION)
     Route: 058
     Dates: start: 20240618, end: 20240618

REACTIONS (1)
  - Coagulopathy [Not Recovered/Not Resolved]

NARRATIVE: CASE EVENT DATE: 20240716
